FAERS Safety Report 4891058-4 (Version None)
Quarter: 2006Q1

REPORT INFORMATION
  Report Type: 
  Country: None (occurrence: None)
  Receive Date: 20060125
  Receipt Date: 20060120
  Transmission Date: 20060701
  Serious: Yes (Life-Threatening, Hospitalization, Other)
  Sender: FDA-Public Use
  Company Number: PHBS2006US01246

PATIENT
  Age: 70 Year
  Sex: Male

DRUGS (6)
  1. POTASSIUM CHLORIDE [Suspect]
     Indication: BLOOD POTASSIUM DECREASED
     Dosage: 40 MEQ, QD
  2. MAGNESIUM [Concomitant]
     Indication: BLOOD MAGNESIUM DECREASED
     Dosage: 500 MG, QD
  3. SPIRONOLACTONE [Suspect]
     Dosage: 50 MG, BID
  4. PROPRANOLOL [Suspect]
     Dosage: 40 MG, QD
  5. THIAMINE [Concomitant]
     Dosage: 100 MG/DAY
  6. FOLIC ACID [Concomitant]
     Dosage: 1 MG/DAY

REACTIONS (21)
  - AGGRESSION [None]
  - ASTHENIA [None]
  - ATRIOVENTRICULAR BLOCK FIRST DEGREE [None]
  - BEDRIDDEN [None]
  - BLOOD BICARBONATE DECREASED [None]
  - BLOOD CHLORIDE INCREASED [None]
  - BLOOD CREATININE INCREASED [None]
  - BLOOD GLUCOSE INCREASED [None]
  - BLOOD SODIUM DECREASED [None]
  - BLOOD UREA INCREASED [None]
  - CACHEXIA [None]
  - CONFUSIONAL STATE [None]
  - ELECTROCARDIOGRAM T WAVE PEAKED [None]
  - HYPERKALAEMIA [None]
  - LETHARGY [None]
  - MUSCULAR WEAKNESS [None]
  - OEDEMA PERIPHERAL [None]
  - ORAL INTAKE REDUCED [None]
  - SINUS BRADYCARDIA [None]
  - URINE OUTPUT DECREASED [None]
  - VENTRICULAR HYPERTROPHY [None]
